FAERS Safety Report 5311273-5 (Version None)
Quarter: 2007Q2

REPORT INFORMATION
  Report Type: 
  Country: None (occurrence: None)
  Receive Date: 20070430
  Receipt Date: 20070419
  Transmission Date: 20071010
  Serious: Yes (Other)
  Sender: FDA-Public Use
  Company Number: PHBS2007JP06878

PATIENT
  Age: 73 Year
  Sex: Male

DRUGS (2)
  1. RITALIN [Suspect]
     Indication: SOMNOLENCE
     Dosage: 5 MG DAILY
     Route: 048
  2. MORPHINE [Concomitant]

REACTIONS (1)
  - DELIRIUM [None]
